FAERS Safety Report 8091431-X (Version None)
Quarter: 2012Q1

REPORT INFORMATION
  Report Type: 
  Country: None (occurrence: None)
  Receive Date: 20120129
  Receipt Date: 20111123
  Transmission Date: 20120608
  Serious: No
  Sender: FDA-Public Use
  Company Number: US-ABBOTT-11P-163-0871631-00

PATIENT
  Age: 74 Year
  Sex: Female

DRUGS (20)
  1. HUMIRA [Suspect]
     Indication: RHEUMATOID ARTHRITIS
     Dates: start: 20111001
  2. TRAMADOL HCL [Concomitant]
     Indication: NERVOUSNESS
     Dosage: AS NEEDED
  3. NASONEX [Concomitant]
     Indication: SINUS DISORDER
  4. SENOKOT [Concomitant]
     Indication: GASTROINTESTINAL MOTILITY DISORDER
  5. ALPRAZOLAM [Concomitant]
     Indication: NERVOUSNESS
  6. LEVOTHROID [Concomitant]
     Indication: THYROID DISORDER
  7. NASONEX [Concomitant]
     Indication: SEASONAL ALLERGY
  8. SINGULAIR [Concomitant]
     Indication: SINUS DISORDER
  9. CALCIUM CARBONATE [Concomitant]
     Indication: PRODUCT USED FOR UNKNOWN INDICATION
  10. DICYCLOMINE [Concomitant]
     Indication: FLATULENCE
  11. AMITRIPTYLINE HCL [Concomitant]
     Indication: NERVOUSNESS
     Dosage: DAILY
  12. STOOL SOFTENER [Concomitant]
     Indication: PRODUCT USED FOR UNKNOWN INDICATION
  13. EYE DROPS [Concomitant]
     Indication: DRY SKIN
  14. METHOTREXATE [Concomitant]
     Indication: PRODUCT USED FOR UNKNOWN INDICATION
  15. FOLIC ACID [Concomitant]
     Indication: PRODUCT USED FOR UNKNOWN INDICATION
     Dosage: EVERY MORNING
  16. BUMETANIDE [Concomitant]
     Indication: FLUID RETENTION
  17. METFORMIN HCL [Concomitant]
     Indication: BLOOD GLUCOSE ABNORMAL
  18. ALLOPURINOL [Concomitant]
     Indication: GOUT
  19. CYMBALTA [Concomitant]
     Indication: ARTHRITIS
  20. BENICAR [Concomitant]
     Indication: SENSATION OF PRESSURE
     Dosage: 40-2.5MG

REACTIONS (5)
  - VULVOVAGINAL PRURITUS [None]
  - VULVOVAGINAL BURNING SENSATION [None]
  - NASOPHARYNGITIS [None]
  - COUGH [None]
  - THROAT TIGHTNESS [None]
